FAERS Safety Report 16359877 (Version 1)
Quarter: 2019Q2

REPORT INFORMATION
  Report Type: Spontaneous
  Country: US (occurrence: US)
  Receive Date: 20190528
  Receipt Date: 20190528
  Transmission Date: 20190711
  Serious: Yes (Life-Threatening, Hospitalization)
  Sender: FDA-Public Use
  Company Number: US-HORIZON-ACT-0129-2019

PATIENT
  Age: 17 Year
  Sex: Male

DRUGS (10)
  1. ACTIMMUNE [Suspect]
     Active Substance: INTERFERON GAMMA-1B
     Indication: CHRONIC GRANULOMATOUS DISEASE
     Dosage: 100 ?G, 0.5 ML THREE TIMES A WEEK
     Route: 058
     Dates: start: 20090618
  2. SPORANOX [Concomitant]
     Active Substance: ITRACONAZOLE
  3. ZYRTEC [Concomitant]
     Active Substance: CETIRIZINE HYDROCHLORIDE
  4. SINGULAIR [Concomitant]
     Active Substance: MONTELUKAST SODIUM
  5. CULTURELLE [Concomitant]
     Active Substance: LACTOBACILLUS RHAMNOSUS
  6. PROAIR HFA [Concomitant]
     Active Substance: ALBUTEROL SULFATE
  7. DELZICOL [Concomitant]
     Active Substance: MESALAMINE
  8. MERCAPTOPURINE. [Concomitant]
     Active Substance: MERCAPTOPURINE
  9. BACTRIM [Concomitant]
     Active Substance: SULFAMETHOXAZOLE\TRIMETHOPRIM
  10. BACTROBAN [Concomitant]
     Active Substance: MUPIROCIN\MUPIROCIN CALCIUM

REACTIONS (11)
  - Lung infection [Unknown]
  - Pulmonary oedema [Unknown]
  - Obstructive airways disorder [Unknown]
  - Tracheostomy [Unknown]
  - Dialysis [Unknown]
  - Sepsis [Unknown]
  - Pneumothorax [Unknown]
  - Loss of consciousness [Unknown]
  - Burkholderia infection [Unknown]
  - Lung assist device therapy [Recovered/Resolved]
  - Thrombosis [Unknown]
